FAERS Safety Report 5779386-1 (Version None)
Quarter: 2008Q2

REPORT INFORMATION
  Report Type: 
  Country: None (occurrence: None)
  Receive Date: 20080619
  Receipt Date: 20080611
  Transmission Date: 20081010
  Serious: Yes (Other)
  Sender: FDA-Public Use
  Company Number: US-AMGEN-STX286296

PATIENT
  Sex: Female

DRUGS (1)
  1. ENBREL [Suspect]
     Indication: PSORIASIS
     Route: 065
     Dates: start: 20070214

REACTIONS (4)
  - BLOOD CREATININE INCREASED [None]
  - HYPERTENSION [None]
  - RENAL FAILURE [None]
  - RENAL FAILURE ACUTE [None]
